FAERS Safety Report 11398141 (Version 1)
Quarter: 2015Q3

REPORT INFORMATION
  Report Type: Report from Study
  Country: DE (occurrence: DE)
  Receive Date: 20150820
  Receipt Date: 20150820
  Transmission Date: 20151125
  Serious: Yes (Hospitalization)
  Sender: FDA-Public Use
  Company Number: DE-ROCHE-1620852

PATIENT
  Age: 0 Day
  Sex: Male

DRUGS (3)
  1. TOCILIZUMAB [Suspect]
     Active Substance: TOCILIZUMAB
     Indication: PRODUCT USED FOR UNKNOWN INDICATION
     Route: 064
     Dates: start: 201301
  2. TOCILIZUMAB [Suspect]
     Active Substance: TOCILIZUMAB
     Route: 064
     Dates: end: 201402
  3. TOCILIZUMAB [Suspect]
     Active Substance: TOCILIZUMAB
     Route: 064
     Dates: start: 201411

REACTIONS (4)
  - Jaundice neonatal [Unknown]
  - Foetal exposure during pregnancy [Unknown]
  - Premature baby [Unknown]
  - Anaemia neonatal [Unknown]

NARRATIVE: CASE EVENT DATE: 20140917
